FAERS Safety Report 5600814-6 (Version None)
Quarter: 2008Q1

REPORT INFORMATION
  Report Type: 
  Country: None (occurrence: None)
  Receive Date: 20080123
  Receipt Date: 20080111
  Transmission Date: 20080703
  Serious: Yes (Death, Other)
  Sender: FDA-Public Use
  Company Number: FR-PFIZER INC-2008004917

PATIENT
  Age: 78 Year
  Sex: Female
  Weight: 90 kg

DRUGS (24)
  1. ZYVOX [Suspect]
     Route: 042
     Dates: start: 20071025, end: 20071029
  2. ZYVOX [Suspect]
     Route: 042
     Dates: start: 20071025, end: 20071027
  3. ZYVOX [Suspect]
     Route: 042
  4. INEXIUM [Suspect]
     Dates: start: 20071012, end: 20071030
  5. INEXIUM [Suspect]
  6. LASIX [Suspect]
     Route: 042
     Dates: start: 20071012, end: 20071018
  7. LASIX [Suspect]
     Dates: start: 20071023, end: 20071024
  8. LASIX [Suspect]
     Dates: start: 20071029, end: 20071031
  9. LASIX [Suspect]
  10. SECTRAL [Concomitant]
  11. RAMIPRIL [Concomitant]
  12. ALDACTONE [Concomitant]
  13. MOLSIDOMINE [Concomitant]
  14. CORDIPATCH [Concomitant]
  15. ALLOPURINOL [Concomitant]
  16. DOBUTAMINE HCL [Concomitant]
  17. NOREPINEPHRINE [Concomitant]
  18. HEPARIN SODIUM INJECTION [Concomitant]
     Dates: start: 20071005, end: 20071015
  19. HEPARIN SODIUM INJECTION [Concomitant]
     Dates: start: 20071102, end: 20071104
  20. CORDARONE [Concomitant]
  21. AUGMENTIN '250' [Concomitant]
  22. TRIFLUCAN [Concomitant]
     Dates: start: 20071024, end: 20071030
  23. TIENAM [Concomitant]
     Dates: start: 20071025, end: 20071029
  24. TIENAM [Concomitant]

REACTIONS (2)
  - DEATH [None]
  - THROMBOCYTOPENIA [None]
